FAERS Safety Report 14236690 (Version 3)
Quarter: 2017Q4

REPORT INFORMATION
  Report Type: Spontaneous
  Country: US (occurrence: US)
  Receive Date: 20171129
  Receipt Date: 20171227
  Transmission Date: 20180321
  Serious: No
  Sender: FDA-Public Use
  Company Number: US-PFIZER INC-2017510005

PATIENT
  Age: 52 Year
  Sex: Female
  Weight: 107 kg

DRUGS (3)
  1. HYDROCHLOROTHIAZIDE. [Suspect]
     Active Substance: HYDROCHLOROTHIAZIDE
     Indication: FLUID RETENTION
     Dosage: UNK UNK, AS NEEDED
  2. GENOTROPIN [Suspect]
     Active Substance: SOMATROPIN
     Dosage: 0.04 ML, 1X/DAY
  3. GENOTROPIN [Suspect]
     Active Substance: SOMATROPIN
     Indication: HYPOPITUITARISM
     Dosage: 0.4 MG, INJECTED DAILY
     Dates: start: 20171101

REACTIONS (3)
  - Muscle spasms [Unknown]
  - Drug dose omission [Not Recovered/Not Resolved]
  - Product physical issue [Unknown]

NARRATIVE: CASE EVENT DATE: 20171118
